FAERS Safety Report 11214616 (Version 1)
Quarter: 2015Q2

REPORT INFORMATION
  Report Type: Report from Study
  Country: BE (occurrence: BE)
  Receive Date: 20150624
  Receipt Date: 20150624
  Transmission Date: 20150821
  Serious: Yes (Other)
  Sender: FDA-Public Use
  Company Number: PHHY2015BE075258

PATIENT

DRUGS (2)
  1. CGP 57148B [Suspect]
     Active Substance: IMATINIB MESYLATE
     Indication: MASTOCYTOSIS
     Dosage: 400 MG, QD
     Route: 065
     Dates: start: 201010
  2. CGP 57148B [Suspect]
     Active Substance: IMATINIB MESYLATE
     Dosage: 100 MG, QD
     Route: 065

REACTIONS (1)
  - Retinal detachment [Unknown]
